FAERS Safety Report 9455936 (Version 2)
Quarter: 2013Q3

REPORT INFORMATION
  Report Type: Spontaneous
  Country: US (occurrence: US)
  Receive Date: 20130813
  Receipt Date: 20130816
  Transmission Date: 20140515
  Serious: No
  Sender: FDA-Public Use
  Company Number: US-009507513-1307USA009864

PATIENT
  Age: 79 Year
  Sex: Female

DRUGS (1)
  1. ZIOPTAN [Suspect]
     Dosage: ONE DROP IN ONE EYE/ONCE DAILY
     Route: 047
     Dates: start: 20130712

REACTIONS (1)
  - Rash [Recovering/Resolving]
